FAERS Safety Report 5671887-X (Version None)
Quarter: 2008Q1

REPORT INFORMATION
  Report Type: 
  Country: None (occurrence: None)
  Receive Date: 20080314
  Receipt Date: 20080229
  Transmission Date: 20080703
  Serious: No
  Sender: FDA-Public Use
  Company Number: TPH-00016

PATIENT
  Age: 23 Year
  Sex: Female

DRUGS (1)
  1. TRIQUILAR (21) [Suspect]
     Indication: ORAL CONTRACEPTION
     Dosage: ORAL
     Route: 048
     Dates: start: 20070220, end: 20070501

REACTIONS (14)
  - ABORTION THREATENED [None]
  - AMNIORRHOEA [None]
  - ANTEPARTUM HAEMORRHAGE [None]
  - BACK PAIN [None]
  - BREAST PAIN [None]
  - CAESAREAN SECTION [None]
  - CERVIX DISORDER [None]
  - DRUG EXPOSURE DURING PREGNANCY [None]
  - DRUG INEFFECTIVE [None]
  - DYSPNOEA [None]
  - INAPPROPRIATE SCHEDULE OF DRUG ADMINISTRATION [None]
  - NEPHROLITHIASIS [None]
  - OLIGOHYDRAMNIOS [None]
  - PREGNANCY ON ORAL CONTRACEPTIVE [None]
